FAERS Safety Report 6038115-7 (Version None)
Quarter: 2009Q1

REPORT INFORMATION
  Report Type: 
  Country: None (occurrence: None)
  Receive Date: 20090113
  Receipt Date: 20090113
  Transmission Date: 20090719
  Serious: Yes (Other)
  Sender: FDA-Public Use
  Company Number: None

PATIENT
  Age: 53 Year
  Sex: Female
  Weight: 80.2867 kg

DRUGS (4)
  1. LEVETIRACETA -LEVETIRACETAM- 500 MG TAB [Suspect]
     Indication: CONVULSION
     Dosage: 1 TABLET TWICE A DAY PO
     Route: 048
  2. SYNTHROID [Concomitant]
  3. FORTAMET [Concomitant]
  4. TRIAMTERENE AND HYDROCHLOROTHIAZIDE [Concomitant]

REACTIONS (2)
  - HALLUCINATION [None]
  - PRODUCT QUALITY ISSUE [None]
